FAERS Safety Report 9738982 (Version 1)
Quarter: 2013Q4

REPORT INFORMATION
  Report Type: Spontaneous
  Country: GB (occurrence: GB)
  Receive Date: 20131209
  Receipt Date: 20131209
  Transmission Date: 20140711
  Serious: Yes (Other)
  Sender: FDA-Public Use
  Company Number: PHFR2013GB006919

PATIENT
  Sex: Male

DRUGS (2)
  1. CLOZARIL [Suspect]
     Indication: SCHIZOPHRENIA
     Dosage: UNK
     Route: 048
     Dates: start: 20131203
  2. DENZAPINE [Interacting]
     Indication: SCHIZOPHRENIA
     Dosage: UNK

REACTIONS (2)
  - Psychotic disorder [Unknown]
  - Drug interaction [Unknown]
